FAERS Safety Report 25574608 (Version 1)
Quarter: 2025Q3

REPORT INFORMATION
  Report Type: Spontaneous
  Country: IN (occurrence: IN)
  Receive Date: 20250718
  Receipt Date: 20250718
  Transmission Date: 20251021
  Serious: Yes (Other)
  Sender: ACCORD
  Company Number: IN-Accord-494526

PATIENT
  Age: 59 Year
  Sex: Male

DRUGS (6)
  1. CAPECITABINE [Suspect]
     Active Substance: CAPECITABINE
     Indication: Bladder transitional cell carcinoma
  2. MITOMYCIN [Suspect]
     Active Substance: MITOMYCIN
     Indication: Bladder transitional cell carcinoma
     Dosage: D1; GIVEN DURING RADIATION THERAPY
     Route: 042
  3. CAPECITABINE [Suspect]
     Active Substance: CAPECITABINE
     Indication: Bladder transitional cell carcinoma
  4. MITOMYCIN [Suspect]
     Active Substance: MITOMYCIN
     Indication: Bladder transitional cell carcinoma
     Dosage: D1; GIVEN DURING RADIATION THERAPY
     Route: 042
  5. MITOMYCIN [Suspect]
     Active Substance: MITOMYCIN
     Indication: Transitional cell carcinoma metastatic
     Dosage: D1; GIVEN DURING RADIATION THERAPY
     Route: 042
  6. CAPECITABINE [Suspect]
     Active Substance: CAPECITABINE
     Indication: Transitional cell carcinoma metastatic

REACTIONS (3)
  - Gastrointestinal toxicity [Unknown]
  - Genital disorder [Unknown]
  - Urinary tract toxicity [Unknown]
